FAERS Safety Report 8916386 (Version 2)
Quarter: 2012Q4

REPORT INFORMATION
  Report Type: 
  Country: JP (occurrence: JP)
  Receive Date: 20121120
  Receipt Date: 20121127
  Transmission Date: 20130627
  Serious: Yes (Life-Threatening, Hospitalization)
  Sender: FDA-Public Use
  Company Number: JP-ELI_LILLY_AND_COMPANY-JP201210008644

PATIENT
  Age: 64 Year
  Sex: Male
  Weight: 72.3 kg

DRUGS (21)
  1. ALIMTA [Suspect]
     Indication: LUNG ADENOCARCINOMA STAGE III
     Dosage: 900 mg, UNK
     Route: 042
     Dates: start: 20120413, end: 20120413
  2. ALIMTA [Suspect]
     Dosage: 800 mg, UNK
     Route: 042
     Dates: start: 20120507, end: 20120620
  3. ALIMTA [Suspect]
     Dosage: 700 mg, UNK
     Route: 042
     Dates: start: 20120718, end: 20120919
  4. CARBOPLATIN [Concomitant]
     Indication: LUNG ADENOCARCINOMA STAGE III
     Dosage: 450 mg, UNK
     Route: 042
     Dates: start: 20120413, end: 20120413
  5. CARBOPLATIN [Concomitant]
     Dosage: 400 mg, UNK
     Route: 042
     Dates: start: 20120507, end: 20120622
  6. CARBOPLATIN [Concomitant]
     Dosage: 350 mg, UNK
     Route: 042
     Dates: start: 20120718, end: 20120815
  7. AVASTIN [Concomitant]
     Indication: LUNG ADENOCARCINOMA STAGE III
     Dosage: 1000 mg, UNK
     Route: 042
     Dates: start: 20120413, end: 20120413
  8. AVASTIN [Concomitant]
     Dosage: 900 mg, UNK
     Route: 042
     Dates: start: 20120507, end: 20120919
  9. PANVITAN [Concomitant]
     Dosage: 1 g, UNK
     Route: 048
     Dates: start: 20120407, end: 20121017
  10. METHYCOBAL [Concomitant]
     Dosage: 1 mg, UNK
     Route: 030
     Dates: start: 20120407, end: 20120905
  11. AMARYL [Concomitant]
     Dosage: 1 mg, UNK
     Route: 048
  12. ACTOS [Concomitant]
     Dosage: 15 mg, qd
     Route: 048
  13. MAGLAX [Concomitant]
     Dosage: 250 mg, tid
     Route: 048
  14. NU-LOTAN [Concomitant]
     Dosage: 50 mg, UNK
     Route: 048
  15. PURSENNID [Concomitant]
     Dosage: 24 mg, UNK
     Route: 048
  16. RESLIN [Concomitant]
     Dosage: 25 mg, tid
     Route: 048
  17. DOGMATYL [Concomitant]
     Dosage: 50 mg, tid
     Route: 048
  18. U PAN [Concomitant]
     Dosage: 0.5 mg, tid
     Route: 048
  19. EMEND [Concomitant]
     Dosage: UNK
     Route: 048
     Dates: end: 20120817
  20. MEDICON [Concomitant]
     Dosage: 15 mg, tid
     Route: 048
  21. MUCOSOLVAN L [Concomitant]
     Dosage: 45 mg, qd
     Route: 048

REACTIONS (3)
  - Lung disorder [Recovered/Resolved with Sequelae]
  - Neutropenia [Recovering/Resolving]
  - Off label use [Unknown]
